FAERS Safety Report 4567224-4 (Version None)
Quarter: 2005Q1

REPORT INFORMATION
  Report Type: 
  Country: None (occurrence: None)
  Receive Date: 20050127
  Receipt Date: 20050114
  Transmission Date: 20050727
  Serious: Yes (Hospitalization, Other)
  Sender: FDA-Public Use
  Company Number: 2005014657

PATIENT
  Age: 80 Year
  Sex: Female
  Weight: 54.4316 kg

DRUGS (3)
  1. CELEBREX [Suspect]
     Indication: ARTHRITIS
     Dosage: 200 MG (200 MG 1 IN 1 D) ORAL
     Route: 048
     Dates: end: 20040101
  2. METOPROLOL TARTRATE [Concomitant]
  3. PRAVASTATIN SODIUM [Concomitant]

REACTIONS (3)
  - CARDIAC DISORDER [None]
  - HYPERTENSION [None]
  - HYPOACUSIS [None]
